FAERS Safety Report 4896717-5 (Version None)
Quarter: 2006Q1

REPORT INFORMATION
  Report Type: 
  Country: None (occurrence: None)
  Receive Date: 20060131
  Receipt Date: 20051006
  Transmission Date: 20060701
  Serious: Yes (Death, Hospitalization)
  Sender: FDA-Public Use
  Company Number: US-MERCK-0510USA05630

PATIENT
  Age: 57 Year
  Sex: Female

DRUGS (3)
  1. VIOXX [Suspect]
     Indication: LIMB OPERATION
     Route: 048
     Dates: start: 20030101, end: 20030101
  2. VIOXX [Suspect]
     Route: 048
     Dates: start: 20030101, end: 20030101
  3. [THERAPY UNSPECIFIED] [Concomitant]
     Indication: HYPERTENSION
     Route: 065

REACTIONS (7)
  - ARTERIOSCLEROSIS [None]
  - GASTROINTESTINAL DISORDER [None]
  - HYPERCHOLESTEROLAEMIA [None]
  - HYPERTENSIVE HEART DISEASE [None]
  - MYOCARDIAL INFARCTION [None]
  - OBESITY [None]
  - SMOKER [None]
